FAERS Safety Report 24190199 (Version 2)
Quarter: 2024Q3

REPORT INFORMATION
  Report Type: Spontaneous
  Country: US (occurrence: US)
  Receive Date: 20240808
  Receipt Date: 20240814
  Transmission Date: 20241017
  Serious: Yes (Other)
  Sender: PFIZER
  Company Number: US-PFIZER INC-202400195537

PATIENT
  Age: 6 Year
  Sex: Male

DRUGS (3)
  1. OXBRYTA [Suspect]
     Active Substance: VOXELOTOR
     Dosage: 600 MG, 1X/DAY, 300MGX2 TABLETS DISSOLVE AS DIRECTED
     Route: 048
     Dates: start: 2024, end: 2024
  2. ENDARI [Suspect]
     Active Substance: GLUTAMINE
     Dosage: UNK
     Dates: start: 2024, end: 2024
  3. HYDROXYUREA [Suspect]
     Active Substance: HYDROXYUREA
     Dosage: UNK
     Dates: start: 2024, end: 2024

REACTIONS (5)
  - Pustule [Recovered/Resolved]
  - Blister [Unknown]
  - Urticaria [Unknown]
  - Eye swelling [Unknown]
  - Burning sensation [Unknown]

NARRATIVE: CASE EVENT DATE: 20240101
